FAERS Safety Report 5702654-6 (Version None)
Quarter: 2008Q2

REPORT INFORMATION
  Report Type: 
  Country: None (occurrence: None)
  Receive Date: 20080411
  Receipt Date: 20071031
  Transmission Date: 20081010
  Serious: No
  Sender: FDA-Public Use
  Company Number: US-ASTRAZENECA-2007UW25335

PATIENT
  Age: 70 Year
  Sex: Female
  Weight: 64.4 kg

DRUGS (5)
  1. TENORMIN [Suspect]
  2. XANAX [Concomitant]
  3. CALCIUM [Concomitant]
  4. VITAMIN E [Concomitant]
  5. FLAXSEED OIL [Concomitant]

REACTIONS (3)
  - DRUG INEFFECTIVE [None]
  - ORAL DISORDER [None]
  - TONGUE DISORDER [None]
